FAERS Safety Report 14714845 (Version 1)
Quarter: 2018Q2

REPORT INFORMATION
  Report Type: Spontaneous
  Country: FR (occurrence: FR)
  Receive Date: 20180404
  Receipt Date: 20180404
  Transmission Date: 20180711
  Serious: Yes (Life-Threatening, Hospitalization)
  Sender: FDA-Public Use
  Company Number: FR-MYLANLABS-2018M1021682

PATIENT
  Age: 55 Year
  Sex: Female

DRUGS (1)
  1. DILTIAZEM. [Suspect]
     Active Substance: DILTIAZEM
     Indication: PRODUCT USED FOR UNKNOWN INDICATION
     Dosage: 8400 MG, UNK,8400 MG ONCE UNIT DOSE: 300 MG,
     Route: 048

REACTIONS (7)
  - Sinus bradycardia [Recovered/Resolved]
  - Intentional overdose [Unknown]
  - Acute kidney injury [Recovered/Resolved]
  - Left ventricular dysfunction [Recovered/Resolved]
  - Shock [Recovered/Resolved]
  - Metabolic acidosis [Recovered/Resolved]
  - Atrioventricular block first degree [Recovered/Resolved]
